FAERS Safety Report 6827795-1 (Version None)
Quarter: 2010Q3

REPORT INFORMATION
  Report Type: 
  Country: None (occurrence: None)
  Receive Date: 20100709
  Receipt Date: 20070129
  Transmission Date: 20110219
  Serious: No
  Sender: FDA-Public Use
  Company Number: US-PFIZER INC-2007008437

PATIENT
  Sex: Male
  Weight: 50.8 kg

DRUGS (11)
  1. CHANTIX [Suspect]
     Indication: SMOKING CESSATION THERAPY
     Dates: start: 20070101
  2. NORVASC [Concomitant]
  3. MICARDIS [Concomitant]
  4. AMILORIDE HYDROCHLORIDE [Concomitant]
  5. POTASSIUM [Concomitant]
  6. PREVACID [Concomitant]
  7. PROZAC [Concomitant]
  8. XANAX [Concomitant]
  9. METHADONE [Concomitant]
  10. SOMA [Concomitant]
  11. PERCOCET [Concomitant]
     Indication: BREAKTHROUGH PAIN

REACTIONS (3)
  - CONSTIPATION [None]
  - HEADACHE [None]
  - NAUSEA [None]
